FAERS Safety Report 21291906 (Version 1)
Quarter: 2022Q3

REPORT INFORMATION
  Report Type: Report from Study
  Country: IT (occurrence: None)
  Receive Date: 20220904
  Receipt Date: 20220904
  Transmission Date: 20221027
  Serious: Yes (Other)
  Sender: FDA-Public Use
  Company Number: IT-ROCHE-3169720

PATIENT
  Age: 31 Year
  Sex: Male

DRUGS (18)
  1. OCRELIZUMAB [Suspect]
     Active Substance: OCRELIZUMAB
     Indication: Multiple sclerosis
     Dosage: DATE OF MOST RECENT DOSE 600 MG OF OCRELIZUMAB PRIOR TO THIS AE AND SAE ONSET WAS 09/FEB/2022 AT 10:
     Route: 042
     Dates: start: 20210810
  2. IBUPROFEN [Concomitant]
     Active Substance: IBUPROFEN
     Indication: Infusion related reaction
     Route: 048
     Dates: start: 20210922
  3. IBUPROFEN [Concomitant]
     Active Substance: IBUPROFEN
     Indication: Multiple sclerosis relapse
  4. CHOLECALCIFEROL [Concomitant]
     Active Substance: CHOLECALCIFEROL
     Indication: Infusion related reaction
     Route: 048
     Dates: start: 20210520
  5. CHOLECALCIFEROL [Concomitant]
     Active Substance: CHOLECALCIFEROL
     Indication: Multiple sclerosis relapse
  6. ATORVASTATIN [Concomitant]
     Active Substance: ATORVASTATIN
     Indication: Infusion related reaction
     Route: 048
     Dates: start: 20210520
  7. ATORVASTATIN [Concomitant]
     Active Substance: ATORVASTATIN
     Indication: Multiple sclerosis relapse
     Route: 048
     Dates: start: 20220826
  8. ATORVASTATIN [Concomitant]
     Active Substance: ATORVASTATIN
     Indication: High density lipoprotein increased
  9. ATORVASTATIN [Concomitant]
     Active Substance: ATORVASTATIN
     Indication: Low density lipoprotein increased
  10. ATORVASTATIN [Concomitant]
     Active Substance: ATORVASTATIN
     Indication: Blood triglycerides increased
  11. METHYLPREDNISOLONE [Concomitant]
     Active Substance: METHYLPREDNISOLONE
     Dosage: THERAPY START DATE 10/AUG/2021 AT 10:15 AND END DATE AT 10/AUG/2021 10:50
     Route: 042
     Dates: start: 20210810, end: 20210810
  12. METHYLPREDNISOLONE [Concomitant]
     Active Substance: METHYLPREDNISOLONE
     Dosage: THERAPY START DATE 09/FEB/2022 AT 9:20 AND END DATE 09/FEB/2022 AT 9:50
     Route: 042
     Dates: start: 20220209, end: 20220209
  13. TRIMETON [Concomitant]
     Active Substance: CHLORPHENIRAMINE MALEATE
     Dosage: THERAPY START DATE 10/AUG/2021 AT 10:10 AND END DATE AT 10/AUG/2021 10:13
     Route: 042
     Dates: start: 20210810, end: 20210810
  14. TRIMETON [Concomitant]
     Active Substance: CHLORPHENIRAMINE MALEATE
     Dosage: THERAPY START DATE 09/FEB/2022 AT 9:10 AND END DATE 09/FEB/2022 AT 9:20
     Route: 042
     Dates: start: 20220209, end: 20220209
  15. ACETAMINOPHEN [Concomitant]
     Active Substance: ACETAMINOPHEN
     Dosage: THERAPY START DATE 10/AUG/2021 AT 10:17 AND END DATE AT 10/AUG/2021 10:17
     Route: 048
     Dates: start: 20210810, end: 20210810
  16. ACETAMINOPHEN [Concomitant]
     Active Substance: ACETAMINOPHEN
     Dosage: THERAPY START DATE 09/FEB/2022 AT 9:15 AND END DATE 09/FEB/2022 AT 9:15
     Route: 048
     Dates: start: 20220209, end: 20220209
  17. OMEPRAZOLE [Concomitant]
     Active Substance: OMEPRAZOLE
     Dosage: THERAPY START DATE 10/AUG/2021 AT 10:09 AND END DATE AT 10/AUG/2021 10:15
     Route: 048
     Dates: start: 20210810, end: 20210810
  18. PANTOPRAZOLE SODIUM [Concomitant]
     Active Substance: PANTOPRAZOLE SODIUM
     Dosage: THERAPY START DATE 09/FEB/2022 AT 9:00 AND END DATE 09/FEB/2022 AT 9:15
     Route: 042
     Dates: start: 20220209, end: 20220209

REACTIONS (1)
  - Alanine aminotransferase increased [Not Recovered/Not Resolved]

NARRATIVE: CASE EVENT DATE: 20220825
